FAERS Safety Report 5487171-3 (Version None)
Quarter: 2007Q3

REPORT INFORMATION
  Report Type: 
  Country: None (occurrence: None)
  Receive Date: 20070925
  Receipt Date: 20070625
  Transmission Date: 20080115
  Serious: No
  Sender: FDA-Public Use
  Company Number: 2007US001297

PATIENT
  Age: 91 Year
  Sex: Female

DRUGS (13)
  1. VESICARE [Suspect]
     Indication: POLLAKIURIA
     Dosage: 10 MG, UID/QD, ORAL
     Route: 048
     Dates: start: 20070509, end: 20070529
  2. FAMOTIDINE [Concomitant]
  3. TOPROL-XL [Concomitant]
  4. VITAMIN E (HERBAL OIL NOS) [Concomitant]
  5. CALTRATE (VITAMIN D NOS, CALCIUM) [Concomitant]
  6. ASCORBIC ACID [Concomitant]
  7. ALLOPURINOL [Concomitant]
  8. TRICOR [Concomitant]
  9. NITROFURANTOIN [Concomitant]
  10. POTASSIUM CHLORIDE [Concomitant]
  11. FERROUS SULFATE TAB [Concomitant]
  12. TORSEMIDE [Concomitant]
  13. CENTRUM SILVER (ASCORBIC ACID, MINERAL NOS, VITAMINS NOS, VITAMIN B NO [Concomitant]

REACTIONS (4)
  - CONSTIPATION [None]
  - DECREASED APPETITE [None]
  - DIZZINESS [None]
  - SOMNOLENCE [None]
